FAERS Safety Report 9788211 (Version 1)
Quarter: 2013Q4

REPORT INFORMATION
  Report Type: Spontaneous
  Country: US (occurrence: None)
  Receive Date: 20131227
  Receipt Date: 20131227
  Transmission Date: 20140711
  Serious: Yes (Hospitalization)
  Sender: FDA-Public Use
  Company Number: None

PATIENT
  Age: 83 Year
  Sex: Female
  Weight: 56 kg

DRUGS (5)
  1. XARELTO [Suspect]
     Indication: PULMONARY EMBOLISM
     Dosage: RECENT
     Route: 048
  2. XARELTO [Suspect]
     Indication: DEEP VEIN THROMBOSIS
     Dosage: RECENT
     Route: 048
  3. ECASA [Suspect]
     Dosage: CHRONIC
     Route: 048
  4. CARVEDILOL [Concomitant]
  5. AMLODIPINE [Concomitant]

REACTIONS (4)
  - Upper gastrointestinal haemorrhage [None]
  - Haemorrhagic anaemia [None]
  - Gastrointestinal haemorrhage [None]
  - Incorrect dose administered [None]
